FAERS Safety Report 21881360 (Version 1)
Quarter: 2023Q1

REPORT INFORMATION
  Report Type: Spontaneous
  Country: DE (occurrence: DE)
  Receive Date: 20230119
  Receipt Date: 20230119
  Transmission Date: 20230417
  Serious: Yes (Life-Threatening, Hospitalization)
  Sender: FDA-Public Use
  Company Number: None

PATIENT
  Age: 74 Year
  Sex: Female
  Weight: 90 kg

DRUGS (12)
  1. ASPIRIN [Suspect]
     Active Substance: ASPIRIN
     Indication: Arteriosclerosis coronary artery
     Dosage: 100 MG, QD (REPORTED AS STARTED 0.07 YEARS AGO)
     Route: 065
     Dates: end: 20030306
  2. BUTHIAZIDE\SPIRONOLACTONE [Suspect]
     Active Substance: BUTHIAZIDE\SPIRONOLACTONE
     Indication: Oedema
     Dosage: 1 DOSAGE FORM, QD (REPORTED AS STARTED 0.07 YEARS AGO.) (REPORTED AS ALDACTONE 50-SALTUCIN)
     Route: 065
  3. CELEBREX [Suspect]
     Active Substance: CELECOXIB
     Indication: Arthralgia
     Dosage: 200 MG, QD
     Route: 065
     Dates: start: 2001, end: 20030306
  4. PIRETANIDE [Suspect]
     Active Substance: PIRETANIDE
     Indication: Hypertension
     Dosage: 6 MG, QD (REPORTED AS STARTED 0.07 YEARS AGO.)
     Route: 065
     Dates: end: 20030307
  5. ALDACTONE [Suspect]
     Active Substance: SPIRONOLACTONE
     Indication: Oedema
     Dosage: 1 DOSAGE FORM, QD
     Route: 065
     Dates: end: 20030307
  6. ENALAPRIL MALEATE [Suspect]
     Active Substance: ENALAPRIL MALEATE
     Indication: Cardiac failure
     Dosage: 20 MG, QD (REPORTED AS STARTED 0.07 YEARS AGO.)
     Route: 065
     Dates: end: 20030306
  7. AZATHIOPRINE [Suspect]
     Active Substance: AZATHIOPRINE
     Indication: Polyneuropathy
     Dosage: 25 MG, QD
     Route: 065
     Dates: start: 2001, end: 20030306
  8. CALCIUM BETA [Concomitant]
     Indication: Calcium deficiency
     Dosage: 500 MG, QD (500)
     Route: 065
     Dates: end: 20030306
  9. CARMEN [Concomitant]
     Indication: Hypertension
     Dosage: 10 MG, QD
     Route: 065
     Dates: start: 1999, end: 20030306
  10. LEVOTHYROXINE SODIUM [Concomitant]
     Active Substance: LEVOTHYROXINE SODIUM
     Indication: Hypothyroidism
     Dosage: 100 UG, QD (REPORTED AS STARTED 0.07 YEARS AGO.) (DRUG TREATMENT CONTINUED)
     Route: 065
  11. DIGITOXIN [Concomitant]
     Active Substance: DIGITOXIN
     Indication: Cardiac failure
     Dosage: 0.07 MG, QD (DESCRIBED AS STARTED 0.07 YEARS AGO.) (DRUG TREATMENT CONTINUED)
     Route: 065
  12. NITROGLYCERIN [Concomitant]
     Active Substance: NITROGLYCERIN
     Indication: Arteriosclerosis coronary artery
     Dosage: 1 DOSAGE FORM, PRN (DESCRIBED  AS STARTED 0.07 YEARS AGO.) (DRUG TREATMENT CONTINUED)
     Route: 065

REACTIONS (5)
  - Asthenia [Unknown]
  - Renal failure [Recovered/Resolved with Sequelae]
  - Dyspnoea [Unknown]
  - Duodenal ulcer [Unknown]
  - Dizziness [Unknown]

NARRATIVE: CASE EVENT DATE: 20030301
